FAERS Safety Report 4894723-8 (Version None)
Quarter: 2006Q1

REPORT INFORMATION
  Report Type: 
  Country: None (occurrence: None)
  Receive Date: 20060127
  Receipt Date: 20060127
  Transmission Date: 20060701
  Serious: No
  Sender: FDA-Public Use
  Company Number: None

PATIENT
  Age: 70 Year
  Sex: Female

DRUGS (2)
  1. REMERON [Suspect]
     Indication: DEPRESSION
     Dosage: DAILY ONCE
  2. REMERON [Suspect]
     Indication: SOMNOLENCE
     Dosage: DAILY ONCE

REACTIONS (2)
  - BREAST PAIN [None]
  - BREAST TENDERNESS [None]
